FAERS Safety Report 6395146-5 (Version None)
Quarter: 2009Q4

REPORT INFORMATION
  Report Type: 
  Country: None (occurrence: None)
  Receive Date: 20091009
  Receipt Date: 20091006
  Transmission Date: 20100525
  Serious: Yes (Hospitalization, Other)
  Sender: FDA-Public Use
  Company Number: US-RB-021200-09

PATIENT
  Age: 57 Year
  Sex: Female

DRUGS (4)
  1. SUBOXONE [Suspect]
     Route: 060
     Dates: start: 20091003, end: 20091004
  2. VALIUM [Suspect]
     Indication: ANXIETY
     Dosage: DOSING DETAILS ARE UNKNOWN
     Route: 065
  3. VISTARIL [Suspect]
     Indication: ANXIETY
     Dosage: DOSEAGE INFORMATION UNKNOWN
     Route: 065
     Dates: start: 20091003
  4. OPIATES [Suspect]
     Indication: DRUG USE FOR UNKNOWN INDICATION
     Dosage: UNKNOWN DOSAGE INFORMATION
     Route: 065

REACTIONS (4)
  - BRAIN OEDEMA [None]
  - CONVULSION [None]
  - HYPERTENSION [None]
  - LEUKOENCEPHALOPATHY [None]
